FAERS Safety Report 21696875 (Version 2)
Quarter: 2023Q2

REPORT INFORMATION
  Report Type: Other
  Country: IE (occurrence: None)
  Receive Date: 20221208
  Receipt Date: 20230622
  Transmission Date: 20230722
  Serious: Yes (Other)
  Sender: FDA-Public Use
  Company Number: IE-ROCHE-3232040

PATIENT
  Sex: Female

DRUGS (1)
  1. OCREVUS [Suspect]
     Active Substance: OCRELIZUMAB
     Indication: Product used for unknown indication
     Dosage: 600MGS X 2 VIALS 300MGS
     Route: 042

REACTIONS (3)
  - Mobility decreased [Unknown]
  - Mobility decreased [Unknown]
  - COVID-19 [Unknown]
